FAERS Safety Report 8178914-9 (Version None)
Quarter: 2012Q1

REPORT INFORMATION
  Report Type: 
  Country: None (occurrence: None)
  Receive Date: 20120302
  Receipt Date: 20120219
  Transmission Date: 20120608
  Serious: No
  Sender: FDA-Public Use
  Company Number: US-BIOGENIDEC-2012BI000535

PATIENT
  Age: 51 Year
  Sex: Female

DRUGS (2)
  1. TYSABRI [Suspect]
     Route: 042
     Dates: start: 20110922, end: 20111103
  2. TYSABRI [Suspect]
     Indication: MULTIPLE SCLEROSIS
     Route: 042
     Dates: start: 20080626, end: 20100122

REACTIONS (8)
  - NAUSEA [None]
  - FEELING ABNORMAL [None]
  - DYSPNOEA [None]
  - TREMOR [None]
  - RETCHING [None]
  - FEELING HOT [None]
  - BLOOD PRESSURE DECREASED [None]
  - FLUSHING [None]
